FAERS Safety Report 9774844 (Version 2)
Quarter: 2014Q1

REPORT INFORMATION
  Report Type: Spontaneous
  Country: US (occurrence: US)
  Receive Date: 20131220
  Receipt Date: 20140124
  Transmission Date: 20141002
  Serious: Yes (Other)
  Sender: FDA-Public Use
  Company Number: US-TEVA-451312USA

PATIENT
  Age: 28 Year
  Sex: Female
  Weight: 55.84 kg

DRUGS (5)
  1. PARAGARD 380A [Suspect]
     Indication: CONTRACEPTION
     Route: 015
     Dates: start: 20131024, end: 20131111
  2. PARAGARD 380A [Suspect]
     Route: 015
     Dates: start: 20131211, end: 20131219
  3. PARAGARD 380A [Suspect]
     Route: 015
     Dates: start: 20131219
  4. VITAMIN D [Concomitant]
     Indication: NUTRITIONAL SUPPLEMENTATION
  5. GLUCOSAMINE AND CHONDROITIN [Concomitant]

REACTIONS (2)
  - Device dislocation [Recovered/Resolved with Sequelae]
  - Device expulsion [Recovered/Resolved]
